FAERS Safety Report 9529452 (Version 10)
Quarter: 2016Q4

REPORT INFORMATION
  Report Type: Spontaneous
  Country: JP (occurrence: JP)
  Receive Date: 20130917
  Receipt Date: 20161213
  Transmission Date: 20170207
  Serious: Yes (Other)
  Sender: FDA-Public Use
  Company Number: PHHY2013JP100092

PATIENT
  Age: 28 Year
  Sex: Female

DRUGS (3)
  1. NEORAL [Suspect]
     Active Substance: CYCLOSPORINE
     Indication: HAEMOLYTIC ANAEMIA
     Dosage: 250 MG, QD
     Route: 048
     Dates: start: 20130112, end: 20131206
  2. NEORAL [Suspect]
     Active Substance: CYCLOSPORINE
     Indication: PUSTULAR PSORIASIS
  3. PREDNISOLONE. [Suspect]
     Active Substance: PREDNISOLONE
     Indication: PUSTULAR PSORIASIS
     Dosage: 30 MG (2.5-30 MG), QD
     Route: 048
     Dates: start: 20121128, end: 20130607

REACTIONS (5)
  - Pustular psoriasis [Recovering/Resolving]
  - Maternal exposure during pregnancy [Unknown]
  - Acquired haemophilia [Recovering/Resolving]
  - Gestational diabetes [Recovered/Resolved]
  - Product use issue [Unknown]

NARRATIVE: CASE EVENT DATE: 20130109
